FAERS Safety Report 9718161 (Version 1)
Quarter: 2013Q4

REPORT INFORMATION
  Report Type: Spontaneous
  Country: US (occurrence: US)
  Receive Date: 20131125
  Receipt Date: 20131125
  Transmission Date: 20140711
  Serious: No
  Sender: FDA-Public Use
  Company Number: US-VIVUS-2013V1000066

PATIENT
  Age: 41 Year
  Sex: Female
  Weight: 66.28 kg

DRUGS (7)
  1. QSYMIA 3.75MG/23MG [Suspect]
     Indication: WEIGHT DECREASED
     Dosage: DAILY DOSE: 1 CAPSULE,
     Route: 048
     Dates: start: 20121221, end: 20130103
  2. QSYMIA 3.75MG/23MG [Suspect]
     Dosage: DAILY DOSE: 2 CAPSULE,
     Route: 048
     Dates: start: 20130104, end: 20130117
  3. ADIPEX [Concomitant]
     Indication: WEIGHT DECREASED
     Route: 048
     Dates: start: 20130122
  4. LOSARTAN [Concomitant]
     Indication: HYPERTENSION
     Route: 048
     Dates: start: 2012
  5. LEXAPRO [Concomitant]
     Indication: DEPRESSION
     Route: 048
     Dates: start: 201204
  6. LEXAPRO [Concomitant]
     Indication: ANXIETY
  7. LUMIZYME [Concomitant]
     Indication: ENZYME ABNORMALITY
     Dates: start: 2010

REACTIONS (2)
  - Diplopia [Recovered/Resolved]
  - Hunger [Recovered/Resolved]
